FAERS Safety Report 21453812 (Version 1)
Quarter: 2022Q4

REPORT INFORMATION
  Report Type: Spontaneous
  Country: None (occurrence: FR)
  Receive Date: 20221013
  Receipt Date: 20221013
  Transmission Date: 20230113
  Serious: Yes (Other)
  Sender: FDA-Public Use
  Company Number: FR-B.Braun Medical Inc.-2133787

PATIENT
  Age: 71 Year
  Sex: Female
  Weight: 67 kg

DRUGS (11)
  1. ACETAMINOPHEN [Suspect]
     Active Substance: ACETAMINOPHEN
  2. KETOPROFEN [Suspect]
     Active Substance: KETOPROFEN
  3. XYLOCAINE [Suspect]
     Active Substance: LIDOCAINE HYDROCHLORIDE
  4. NEFOPAM [Suspect]
     Active Substance: NEFOPAM
  5. EPHEDRINE HYDROCHLORIDE [Suspect]
     Active Substance: EPHEDRINE HYDROCHLORIDE
  6. KETAMINE HYDROCHLORIDE [Suspect]
     Active Substance: KETAMINE HYDROCHLORIDE
  7. PROPOFOL [Suspect]
     Active Substance: PROPOFOL
  8. PERFALGAN [Suspect]
     Active Substance: ACETAMINOPHEN
  9. ALFENTANIL HYDROCHLORIDE [Suspect]
     Active Substance: ALFENTANIL HYDROCHLORIDE
  10. PHLOROGLUCINOL [Suspect]
     Active Substance: PHLOROGLUCINOL
  11. SEVOFLURANE [Suspect]
     Active Substance: SEVOFLURANE

REACTIONS (1)
  - Arrhythmia [Not Recovered/Not Resolved]
